FAERS Safety Report 9382308 (Version 1)
Quarter: 2013Q3

REPORT INFORMATION
  Report Type: Spontaneous
  Country: US (occurrence: None)
  Receive Date: 20130702
  Receipt Date: 20130702
  Transmission Date: 20140515
  Serious: Yes (Other)
  Sender: FDA-Public Use
  Company Number: None

PATIENT
  Age: 61 None
  Sex: Female
  Weight: 72.58 kg

DRUGS (3)
  1. PRADAXA, 150 MG, BOEHRINGER INGELHEIM [Suspect]
     Indication: ARRHYTHMIA
     Route: 048
     Dates: start: 20120110
  2. CYTOMEL [Concomitant]
  3. BENICAR [Concomitant]

REACTIONS (3)
  - Dry eye [None]
  - Blepharitis [None]
  - Ocular hyperaemia [None]
